FAERS Safety Report 6741155-3 (Version None)
Quarter: 2010Q2

REPORT INFORMATION
  Report Type: 
  Country: None (occurrence: None)
  Receive Date: 20100526
  Receipt Date: 20100517
  Transmission Date: 20101027
  Serious: Yes (Hospitalization)
  Sender: FDA-Public Use
  Company Number: ES-NAPPMUNDI-GBR-2010-0006575

PATIENT
  Sex: Female
  Weight: 54 kg

DRUGS (18)
  1. MORPHINE SULFATE [Suspect]
     Indication: PAIN
     Dosage: UNK
     Dates: start: 20100404, end: 20100416
  2. DOXORUBICIN HCL [Suspect]
     Indication: OVARIAN CANCER
     Dosage: 61.76 MG, MONTHLY
     Route: 042
     Dates: start: 20100409, end: 20100409
  3. FLUOXETINE [Suspect]
     Indication: DEPRESSION
     Dosage: UNK
     Route: 065
  4. PHENTANYL [Suspect]
     Indication: PAIN
     Dosage: UNK
     Route: 065
     Dates: start: 20100313
  5. LORAZEPAM [Suspect]
     Indication: DEPRESSION
     Dosage: UNK
     Dates: start: 20080101
  6. ONDANSETRON [Suspect]
     Indication: VOMITING
     Dosage: UNK
     Route: 065
     Dates: start: 20100325
  7. TRAZODONE HCL [Suspect]
     Indication: DEPRESSION
     Dosage: UNK
     Route: 065
     Dates: start: 20100315
  8. HALOPERIDOL [Suspect]
     Indication: DEPRESSION
     Dosage: UNK
     Route: 065
     Dates: start: 20100401, end: 20100422
  9. MOVICOL                            /01053601/ [Concomitant]
     Indication: CONSTIPATION PROPHYLAXIS
     Dosage: UNK
     Route: 065
     Dates: start: 20100305
  10. ENOXAPARIN SODIUM [Concomitant]
     Indication: HAEMOSTASIS
     Dosage: UNK
     Route: 065
     Dates: start: 20100304
  11. COTRIM [Concomitant]
     Indication: DEVICE RELATED INFECTION
     Dosage: UNK
     Route: 065
     Dates: start: 20100306
  12. HYDROCORTISONE [Concomitant]
     Indication: PAIN
     Dosage: UNK
     Route: 065
     Dates: start: 20100325, end: 20100325
  13. DEXAMETHASONE [Concomitant]
     Indication: PAIN
     Dosage: UNK
     Route: 065
     Dates: start: 20100331
  14. OMEPRAZOLE [Concomitant]
     Indication: GASTRITIS
     Dosage: UNK
     Route: 065
     Dates: start: 20080101
  15. PARACETAMOL [Concomitant]
     Indication: PYREXIA
     Dosage: UNK
     Route: 065
     Dates: start: 20100331
  16. AUGMENTINE                         /00852501/ [Concomitant]
     Indication: PYREXIA
     Dosage: UNK
     Route: 065
     Dates: start: 20100331, end: 20100411
  17. UROKINASE [Concomitant]
     Indication: HAEMOSTASIS
     Dosage: UNK
     Route: 065
     Dates: start: 20100415, end: 20100415
  18. BLOOD TRANSFUSION, AUXILIARY PRODUCTS [Concomitant]
     Indication: HAEMOGLOBIN DECREASED
     Dosage: UNK
     Route: 042
     Dates: start: 20100331, end: 20100331

REACTIONS (1)
  - BRADYPHRENIA [None]
